FAERS Safety Report 8031584-2 (Version None)
Quarter: 2012Q1

REPORT INFORMATION
  Report Type: 
  Country: None (occurrence: None)
  Receive Date: 20120109
  Receipt Date: 20111219
  Transmission Date: 20120608
  Serious: Yes (Hospitalization)
  Sender: FDA-Public Use
  Company Number: DE-ABBOTT-12P-062-0890064-00

PATIENT
  Age: 59 Year
  Sex: Female
  Weight: 117 kg

DRUGS (2)
  1. CORTISONE ACETATE [Concomitant]
     Indication: PRODUCT USED FOR UNKNOWN INDICATION
     Dates: start: 20110915
  2. HUMIRA [Suspect]
     Indication: PSORIASIS

REACTIONS (2)
  - PSORIASIS [None]
  - HOSPITALISATION [None]
